FAERS Safety Report 7582954-8 (Version None)
Quarter: 2011Q2

REPORT INFORMATION
  Report Type: 
  Country: None (occurrence: None)
  Receive Date: 20110630
  Receipt Date: 20080125
  Transmission Date: 20111010
  Serious: Yes (Other)
  Sender: FDA-Public Use
  Company Number: US-BAYER-200812212NA

PATIENT
  Age: 55 Year
  Sex: Female
  Weight: 78.005 kg

DRUGS (17)
  1. TRASYLOL [Suspect]
     Indication: AORTIC VALVE REPLACEMENT
     Dosage: 60 CC/HOUR FOR ONE HOUR THEN TOTAL 50CC
     Route: 042
     Dates: start: 20041110
  2. PAXIL [Concomitant]
     Dosage: 20 MG, QD
  3. TRASYLOL [Suspect]
     Indication: MITRAL VALVE REPLACEMENT
  4. LASIX [Concomitant]
     Dosage: 20 MG, QD
     Route: 048
  5. PREDNISONE [Concomitant]
     Dosage: 20 MG, AS DIRECTED
     Route: 048
     Dates: start: 20040805
  6. NICOTINE [Concomitant]
     Dosage: 21 MG, QD
     Route: 062
     Dates: start: 20040919
  7. HEPARIN [Concomitant]
     Dosage: UNK
     Route: 042
     Dates: start: 20041110
  8. INSULIN [Concomitant]
     Dosage: 2 UNITS PER HOUR
     Route: 042
     Dates: start: 20041110
  9. EPINEPHRINE [Concomitant]
     Dosage: 15 CC PER HOUR
     Route: 042
     Dates: start: 20041110, end: 20041110
  10. NITROGLYCERIN [Concomitant]
     Dosage: UNK
     Route: 042
     Dates: start: 20041110
  11. VANCOMYCIN [Concomitant]
     Dosage: 1 G, UNK
     Route: 042
     Dates: start: 20041110
  12. ZITHROMAX [Concomitant]
     Dosage: 500 MG, UNK
     Route: 048
     Dates: start: 20040805
  13. HYDRALAZINE HCL [Concomitant]
     Dosage: UNK
     Route: 042
     Dates: start: 20041110, end: 20041110
  14. ATENOLOL [Concomitant]
     Dosage: 25 MG, QD
     Route: 048
  15. ASPIRIN [Concomitant]
     Dosage: 81 MG, QD
     Route: 048
  16. LABETALOL HCL [Concomitant]
     Dosage: 100-200 MG /TWICE DAILY
     Route: 048
     Dates: start: 20041105
  17. DOPAMINE HCL [Concomitant]
     Dosage: 3 MICROGRAMS
     Route: 042
     Dates: start: 20041110, end: 20041110

REACTIONS (4)
  - INJURY [None]
  - RENAL FAILURE [None]
  - RENAL INJURY [None]
  - DEPRESSION [None]
